FAERS Safety Report 15816878 (Version 1)
Quarter: 2019Q1

REPORT INFORMATION
  Report Type: Spontaneous
  Country: US (occurrence: US)
  Receive Date: 20190113
  Receipt Date: 20190113
  Transmission Date: 20190417
  Serious: No
  Sender: FDA-Public Use
  Company Number: US-COOPERSURGICAL, INC.-US-2018CPS000205

PATIENT

DRUGS (2)
  1. PARAGARD T 380A [Suspect]
     Active Substance: COPPER
     Indication: CONTRACEPTION
     Dosage: UNK
     Route: 015
     Dates: start: 2006
  2. VAPE [Concomitant]
     Indication: PRODUCT USED FOR UNKNOWN INDICATION

REACTIONS (10)
  - Crying [Unknown]
  - Nausea [Unknown]
  - Menstruation delayed [Unknown]
  - Retching [Unknown]
  - Eating disorder [Unknown]
  - Uterine mass [Unknown]
  - Somnolence [Unknown]
  - Menorrhagia [Recovered/Resolved]
  - Off label use [Unknown]
  - Parosmia [Unknown]

NARRATIVE: CASE EVENT DATE: 2006
